FAERS Safety Report 5227374-6 (Version None)
Quarter: 2007Q1

REPORT INFORMATION
  Report Type: 
  Country: None (occurrence: None)
  Receive Date: 20070130
  Receipt Date: 20070116
  Transmission Date: 20070707
  Serious: Yes (Death)
  Sender: FDA-Public Use
  Company Number: 15547

PATIENT
  Age: 10 Year
  Sex: Male

DRUGS (6)
  1. VINCRISTINE [Suspect]
     Indication: ASTROCYTOMA
     Dosage: 1.5 MG/M2 WEEKLY
  2. CARBOPLATIN [Suspect]
  3. DACTINOMYCIN [Suspect]
     Dosage: 15 MCG/KG OTH
  4. PROCARBAZINE [Suspect]
     Dosage: 200 MG/M2 PER_CYCLE
  5. LOMUSTINE [Suspect]
     Dosage: 100 MG/M2 PER_CYCLE
  6. TIOGUANINE [Suspect]
     Dosage: 30 MG/M2 PER_CYCLE

REACTIONS (7)
  - CONVULSION [None]
  - FUNGAL SEPSIS [None]
  - INAPPROPRIATE ANTIDIURETIC HORMONE SECRETION [None]
  - MYELODYSPLASTIC SYNDROME [None]
  - NEOPLASM PROGRESSION [None]
  - NEUROPATHY PERIPHERAL [None]
  - RESPIRATORY FAILURE [None]
